FAERS Safety Report 8496683-X (Version None)
Quarter: 2012Q3

REPORT INFORMATION
  Report Type: 
  Country: None (occurrence: None)
  Receive Date: 20120709
  Receipt Date: 20120704
  Transmission Date: 20120928
  Serious: Yes (Other)
  Sender: FDA-Public Use
  Company Number: DE-AMGEN-UK376033

PATIENT
  Age: 57 Year
  Sex: Male
  Weight: 94.983 kg

DRUGS (8)
  1. DEXAMETHASONE [Concomitant]
     Dosage: .5 MG, QD
     Route: 048
     Dates: start: 20010101
  2. PREDNISONE [Concomitant]
     Dosage: 5 MG, QD
     Route: 048
     Dates: start: 20010101
  3. METOPROLOL SUCCINATE [Concomitant]
     Dosage: 25 MG, QD
     Route: 048
     Dates: start: 20010101
  4. PAMIDRONATE DISODIUM [Concomitant]
     Dosage: 60 MG, QMO
     Route: 042
     Dates: start: 20050101
  5. BAYMYCARD [Concomitant]
     Dosage: UNK UNK, BID
     Route: 048
     Dates: start: 20010101
  6. CALCIUM [Concomitant]
     Dosage: 100 MG, QD
     Route: 048
     Dates: start: 20010101
  7. NPLATE [Suspect]
     Indication: IDIOPATHIC THROMBOCYTOPENIC PURPURA
     Dosage: 6 MUG/KG, QWK
     Route: 058
     Dates: start: 20091007
  8. RANITIDINE [Concomitant]
     Dosage: 300 MG, QD
     Route: 048
     Dates: start: 20010101

REACTIONS (5)
  - CONDITION AGGRAVATED [None]
  - ECCHYMOSIS [None]
  - PLATELET DISORDER [None]
  - HAEMORRHAGE [None]
  - BONE MARROW RETICULIN FIBROSIS [None]
